FAERS Safety Report 10284033 (Version 1)
Quarter: 2014Q3

REPORT INFORMATION
  Report Type: Spontaneous
  Country: JP (occurrence: JP)
  Receive Date: 20140708
  Receipt Date: 20140708
  Transmission Date: 20150326
  Serious: Yes (Hospitalization, Other)
  Sender: FDA-Public Use
  Company Number: JP-PFIZER INC-2014187233

PATIENT
  Age: 45 Year
  Sex: Female

DRUGS (1)
  1. CABASER [Suspect]
     Active Substance: CABERGOLINE
     Indication: REPRODUCTIVE TRACT DISORDER
     Dosage: UNK, WEEKLY
     Route: 048

REACTIONS (5)
  - Off label use [Unknown]
  - Suicide attempt [Unknown]
  - Toxicity to various agents [Unknown]
  - Pneumonia aspiration [Unknown]
  - Altered state of consciousness [Unknown]

NARRATIVE: CASE EVENT DATE: 20140630
